FAERS Safety Report 14177269 (Version 1)
Quarter: 2017Q4

REPORT INFORMATION
  Report Type: Spontaneous
  Country: US (occurrence: US)
  Receive Date: 20171110
  Receipt Date: 20171110
  Transmission Date: 20180321
  Serious: No
  Sender: FDA-Public Use
  Company Number: US-TEVA-822567ACC

PATIENT
  Age: 23 Year
  Sex: Female
  Weight: 61.74 kg

DRUGS (1)
  1. PARAGARD T 380A [Suspect]
     Active Substance: COPPER
     Indication: CONTRACEPTION
     Dates: start: 20161201, end: 20170620

REACTIONS (3)
  - Pelvic pain [Not Recovered/Not Resolved]
  - Amenorrhoea [Recovered/Resolved]
  - Menorrhagia [Unknown]

NARRATIVE: CASE EVENT DATE: 20161201
